FAERS Safety Report 10271383 (Version 3)
Quarter: 2014Q4

REPORT INFORMATION
  Report Type: Spontaneous
  Country: US (occurrence: US)
  Receive Date: 20140701
  Receipt Date: 20141021
  Transmission Date: 20150528
  Serious: Yes (Hospitalization, Other)
  Sender: FDA-Public Use
  Company Number: US-SA-2014SA085436

PATIENT
  Age: 61 Year
  Sex: Male
  Weight: 76.9 kg

DRUGS (6)
  1. LASIX [Concomitant]
     Active Substance: FUROSEMIDE
  2. SENSIPAR [Concomitant]
     Active Substance: CINACALCET HYDROCHLORIDE
  3. RENVELA [Suspect]
     Active Substance: SEVELAMER CARBONATE
     Indication: HYPERPHOSPHATAEMIA
     Route: 048
     Dates: end: 201405
  4. NEURONTIN [Concomitant]
     Active Substance: GABAPENTIN
     Indication: RESTLESS LEGS SYNDROME
     Dosage: 1-3 TABLETS
  5. FERROUS GLUCONATE/GLUTAMIC ACID HYDROCHLORIDE/MINERALS NOS/VITAMINS NOS/PEPSIN/LIPASE [Concomitant]
  6. CARDIZEM CD [Concomitant]
     Active Substance: DILTIAZEM HYDROCHLORIDE
     Indication: BLOOD PRESSURE

REACTIONS (7)
  - Hepatic cirrhosis [Unknown]
  - Hepatic function abnormal [Unknown]
  - Mental status changes [Unknown]
  - Road traffic accident [Unknown]
  - Condition aggravated [Unknown]
  - Ascites [Unknown]
  - Tibia fracture [Unknown]

NARRATIVE: CASE EVENT DATE: 2014
